FAERS Safety Report 9572126 (Version 1)
Quarter: 2013Q4

REPORT INFORMATION
  Report Type: Spontaneous
  Country: US (occurrence: US)
  Receive Date: 20131001
  Receipt Date: 20131001
  Transmission Date: 20140711
  Serious: Yes (Hospitalization, Other)
  Sender: FDA-Public Use
  Company Number: US-PFIZER INC-2013278236

PATIENT
  Sex: 0

DRUGS (1)
  1. TESTOSTERONE CIPIONATE [Suspect]
     Dosage: 1 DF, EVERY 3 WEEKS (EVERY 21 DAYS)

REACTIONS (3)
  - Pulmonary embolism [Unknown]
  - Deep vein thrombosis [Unknown]
  - Sleep disorder [Unknown]
